FAERS Safety Report 6297079-1 (Version None)
Quarter: 2009Q3

REPORT INFORMATION
  Report Type: 
  Country: None (occurrence: None)
  Receive Date: 20090724
  Receipt Date: 20090505
  Transmission Date: 20100115
  Serious: Yes (Hospitalization)
  Sender: FDA-Public Use
  Company Number: 2009BI013567

PATIENT
  Age: 57 Year
  Sex: Male
  Weight: 94 kg

DRUGS (8)
  1. TYSABRI [Suspect]
     Indication: CROHN'S DISEASE
     Dosage: 300 MG;QM;IV
     Route: 042
     Dates: start: 20081231, end: 20090225
  2. TYSABRI [Suspect]
  3. GLUCOTROL [Concomitant]
  4. LIPITOR [Concomitant]
  5. LOPRESSOR [Concomitant]
  6. NITROSTAT [Concomitant]
  7. COUMADIN [Concomitant]
  8. PREDNISONE [Concomitant]

REACTIONS (4)
  - BACK DISORDER [None]
  - CHEST PAIN [None]
  - CROHN'S DISEASE [None]
  - HAEMATOCHEZIA [None]
